FAERS Safety Report 9188473 (Version 1)
Quarter: 2013Q1

REPORT INFORMATION
  Report Type: Spontaneous
  Country: GB (occurrence: GB)
  Receive Date: 20130325
  Receipt Date: 20130325
  Transmission Date: 20140127
  Serious: Yes (Other)
  Sender: FDA-Public Use
  Company Number: PHHY2013GB026333

PATIENT
  Age: 38 Year
  Sex: Male
  Weight: 70 kg

DRUGS (6)
  1. MIRTAZAPINE [Suspect]
     Indication: DEPRESSION
     Dosage: 45 MG, DAILY
  2. MIRTAZAPINE [Interacting]
     Dosage: 15 MG, DAILY
     Dates: end: 20130212
  3. DIAZEPAM [Interacting]
     Dosage: 40 MG, QD
  4. NITRAZEPAM [Interacting]
  5. OPIUM [Interacting]
  6. VICTRELIS [Interacting]
     Indication: HEPATITIS C
     Route: 048
     Dates: start: 20121217

REACTIONS (4)
  - Hyperhidrosis [Recovered/Resolved]
  - Tachycardia [Recovered/Resolved]
  - Drug interaction [Unknown]
  - Withdrawal syndrome [Recovered/Resolved]
